FAERS Safety Report 5001263-4 (Version None)
Quarter: 2006Q1

REPORT INFORMATION
  Report Type: 
  Country: None (occurrence: None)
  Receive Date: 20060315
  Receipt Date: 20051116
  Transmission Date: 20060701
  Serious: Yes (Other)
  Sender: FDA-Public Use
  Company Number: 421201

PATIENT
  Age: 56 Year
  Sex: Female
  Weight: 75.3 kg

DRUGS (1)
  1. BONIVA [Suspect]
     Dosage: 150 MG 1 PER MONTH ORAL
     Route: 048
     Dates: start: 20050901, end: 20051001

REACTIONS (1)
  - RASH [None]
